FAERS Safety Report 11067804 (Version 1)
Quarter: 2015Q2

REPORT INFORMATION
  Report Type: Spontaneous
  Country: GB (occurrence: GB)
  Receive Date: 20150427
  Receipt Date: 20150427
  Transmission Date: 20150821
  Serious: Yes (Other)
  Sender: FDA-Public Use
  Company Number: GB-AUROBINDO-AUR-APL-2015-03474

PATIENT
  Age: 28 Year
  Sex: Female
  Weight: 57.15 kg

DRUGS (1)
  1. SERTRALINE [Suspect]
     Active Substance: SERTRALINE HYDROCHLORIDE
     Indication: ANXIETY
     Dosage: 50 MG, UNK
     Route: 048
     Dates: start: 20130301, end: 20130301

REACTIONS (21)
  - Dissociation [Recovered/Resolved]
  - Nausea [Recovered/Resolved]
  - Yawning [Recovered/Resolved]
  - Gait disturbance [Unknown]
  - Muscle twitching [Recovered/Resolved]
  - Muscle tightness [Recovered/Resolved]
  - Fatigue [Recovered/Resolved]
  - Feeling abnormal [Unknown]
  - Malaise [Recovered/Resolved]
  - Panic reaction [Recovered/Resolved]
  - Hypoaesthesia [Recovered/Resolved]
  - Foot deformity [Recovered/Resolved]
  - Fear [Unknown]
  - Asthenopia [Recovered/Resolved]
  - Agitation [Recovered/Resolved]
  - Energy increased [Recovered/Resolved]
  - Decreased appetite [Recovered/Resolved]
  - Paranoia [Recovered/Resolved]
  - Emotional poverty [Recovered/Resolved]
  - Depersonalisation [Recovered/Resolved]
  - Hot flush [Recovered/Resolved]
